FAERS Safety Report 8315121-0 (Version None)
Quarter: 2012Q2

REPORT INFORMATION
  Report Type: 
  Country: None (occurrence: None)
  Receive Date: 20120426
  Receipt Date: 20120419
  Transmission Date: 20120825
  Serious: Yes (Hospitalization)
  Sender: FDA-Public Use
  Company Number: US-GLAXOSMITHKLINE-A0731837A

PATIENT
  Age: 46 Year
  Sex: Male
  Weight: 105.5 kg

DRUGS (12)
  1. BYETTA [Concomitant]
  2. METFORMIN HCL [Concomitant]
  3. GLIPIZIDE [Concomitant]
  4. PROTONIX [Concomitant]
  5. INSULIN [Concomitant]
  6. METOPROLOL TARTRATE [Concomitant]
  7. NEURONTIN [Concomitant]
  8. TRIAMTERENE AND HYDROCHLOROTHIAZIDE [Concomitant]
  9. AVANDIA [Suspect]
     Indication: DIABETES MELLITUS
     Dosage: 8MG PER DAY
     Route: 048
     Dates: start: 20010117, end: 20060105
  10. ALTACE [Concomitant]
  11. PREVACID [Concomitant]
  12. GLUCOPHAGE [Concomitant]

REACTIONS (7)
  - CARDIAC FAILURE CONGESTIVE [None]
  - ISCHAEMIC CARDIOMYOPATHY [None]
  - MYOCARDIAL INFARCTION [None]
  - PAIN [None]
  - HEART INJURY [None]
  - VENTRICULAR TACHYCARDIA [None]
  - PULMONARY EMBOLISM [None]
